FAERS Safety Report 8049228-2 (Version None)
Quarter: 2012Q1

REPORT INFORMATION
  Report Type: 
  Country: None (occurrence: None)
  Receive Date: 20120117
  Receipt Date: 20120106
  Transmission Date: 20120608
  Serious: Yes (Other)
  Sender: FDA-Public Use
  Company Number: FR-GENZYME-THYM-1003068

PATIENT
  Sex: Female
  Weight: 10 kg

DRUGS (5)
  1. CORTICOSTEROIDS [Concomitant]
     Indication: PREMEDICATION
     Dosage: UNK
     Route: 065
  2. BUSULFAN [Concomitant]
     Indication: PRODUCT USED FOR UNKNOWN INDICATION
     Dosage: UNK
     Route: 065
  3. ACETAMINOPHEN [Concomitant]
     Indication: PREMEDICATION
     Dosage: UNK
     Route: 065
  4. THYMOGLOBULIN [Suspect]
     Indication: BONE MARROW CONDITIONING REGIMEN
     Dosage: 200 MG, QD
     Route: 042
     Dates: start: 20111202, end: 20111205
  5. POLARAMINE [Concomitant]
     Indication: PREMEDICATION
     Dosage: UNK
     Route: 065

REACTIONS (5)
  - HYPOPERFUSION [None]
  - HAEMODYNAMIC INSTABILITY [None]
  - HYPOTENSION [None]
  - OVERDOSE [None]
  - TACHYCARDIA [None]
